FAERS Safety Report 14013377 (Version 4)
Quarter: 2020Q2

REPORT INFORMATION
  Report Type: Report from Study
  Country: US (occurrence: US)
  Receive Date: 20170926
  Receipt Date: 20200519
  Transmission Date: 20200713
  Serious: Yes (Other)
  Sender: FDA-Public Use
  Company Number: PHHY2016US160426

PATIENT
  Age: 55 Year
  Sex: Female

DRUGS (1)
  1. GILENYA [Suspect]
     Active Substance: FINGOLIMOD HYDROCHLORIDE
     Indication: MULTIPLE SCLEROSIS
     Dosage: UNK, QD
     Route: 048

REACTIONS (12)
  - Seborrhoeic keratosis [Unknown]
  - Sinusitis [Recovered/Resolved]
  - Acrochordon [Unknown]
  - Milia [Unknown]
  - Vitamin B12 decreased [Not Recovered/Not Resolved]
  - Hyperhidrosis [Unknown]
  - Melanocytic naevus [Unknown]
  - Bradycardia [Recovered/Resolved]
  - Rosacea [Unknown]
  - Solar lentigo [Unknown]
  - Immunodeficiency [Unknown]
  - Haemangioma of skin [Unknown]

NARRATIVE: CASE EVENT DATE: 20150708
